FAERS Safety Report 24552746 (Version 2)
Quarter: 2025Q1

REPORT INFORMATION
  Report Type: Other
  Country: US (occurrence: US)
  Receive Date: 20241027
  Receipt Date: 20250102
  Transmission Date: 20250408
  Serious: Yes (Death)
  Sender: DEXCEL
  Company Number: US-DEXPHARM-2024-3168

PATIENT
  Age: 69 Year

DRUGS (4)
  1. DONEPEZIL [Interacting]
     Active Substance: DONEPEZIL
  2. VENLAFAXINE [Interacting]
     Active Substance: VENLAFAXINE HYDROCHLORIDE
  3. QUETIAPINE [Interacting]
     Active Substance: QUETIAPINE
  4. DESVENLAFAXINE [Suspect]
     Active Substance: DESVENLAFAXINE

REACTIONS (2)
  - Intentional overdose [Fatal]
  - Drug interaction [Fatal]
